FAERS Safety Report 18689471 (Version 11)
Quarter: 2021Q3

REPORT INFORMATION
  Report Type: Report from Study
  Country: US (occurrence: US)
  Receive Date: 20201231
  Receipt Date: 20210927
  Transmission Date: 20211014
  Serious: Yes (Hospitalization)
  Sender: FDA-Public Use
  Company Number: US-TAKEDA-US202026915

PATIENT
  Sex: Female
  Weight: 86 kg

DRUGS (30)
  1. ICATIBANT [Suspect]
     Active Substance: ICATIBANT ACETATE
     Indication: IMMUNE SYSTEM DISORDER
     Dosage: 30 MILLIGRAM, AS NEEDED
     Route: 058
     Dates: start: 20200807
  2. ICATIBANT [Suspect]
     Active Substance: ICATIBANT ACETATE
     Indication: IMMUNE SYSTEM DISORDER
     Dosage: 30 MILLIGRAM, AS NEEDED
     Route: 058
     Dates: start: 20200807
  3. BUDESONIDE. [Concomitant]
     Active Substance: BUDESONIDE
  4. VALTREX [Concomitant]
     Active Substance: VALACYCLOVIR HYDROCHLORIDE
  5. OCTAGAM IMMUNE GLOBULIN (HUMAN) [Concomitant]
     Active Substance: HUMAN IMMUNOGLOBULIN G
  6. AMBIEN [Concomitant]
     Active Substance: ZOLPIDEM TARTRATE
  7. ICATIBANT [Concomitant]
     Active Substance: ICATIBANT ACETATE
  8. RESTASIS [Concomitant]
     Active Substance: CYCLOSPORINE
  9. CEVIMELINE. [Concomitant]
     Active Substance: CEVIMELINE
  10. POTASSIUM [Concomitant]
     Active Substance: POTASSIUM
  11. OXYGEN. [Concomitant]
     Active Substance: OXYGEN
  12. MUPIROCIN. [Concomitant]
     Active Substance: MUPIROCIN
  13. CYTOMEL [Concomitant]
     Active Substance: LIOTHYRONINE SODIUM
  14. BERINERT [Concomitant]
     Active Substance: HUMAN C1-ESTERASE INHIBITOR
  15. METFORMIN [Concomitant]
     Active Substance: METFORMIN HYDROCHLORIDE
  16. XARELTO [Concomitant]
     Active Substance: RIVAROXABAN
  17. HEPARIN [Concomitant]
     Active Substance: HEPARIN SODIUM
  18. MESTINON [Concomitant]
     Active Substance: PYRIDOSTIGMINE BROMIDE
  19. SODIUM CHLORIDE. [Concomitant]
     Active Substance: SODIUM CHLORIDE
  20. EPINEPHRINE. [Concomitant]
     Active Substance: EPINEPHRINE
  21. CARVEDILOL. [Concomitant]
     Active Substance: CARVEDILOL
  22. BACLOFEN. [Concomitant]
     Active Substance: BACLOFEN
  23. ALBUTEROL [SALBUTAMOL] [Concomitant]
     Active Substance: ALBUTEROL
  24. LEVOTHYROXINE. [Concomitant]
     Active Substance: LEVOTHYROXINE
  25. EMGALITY [Concomitant]
     Active Substance: GALCANEZUMAB-GNLM
  26. VITAMIN D3 [Concomitant]
     Active Substance: CHOLECALCIFEROL
  27. CROMOLYN [CROMOGLICATE SODIUM] [Concomitant]
     Active Substance: CROMOLYN SODIUM
  28. LEVETIRACETAM. [Concomitant]
     Active Substance: LEVETIRACETAM
  29. PLAQUENIL [Concomitant]
     Active Substance: HYDROXYCHLOROQUINE SULFATE
  30. KETOTIFEN [Concomitant]
     Active Substance: KETOTIFEN

REACTIONS (9)
  - Postural orthostatic tachycardia syndrome [Unknown]
  - Brain operation [Unknown]
  - Skin reaction [Unknown]
  - Malaise [Unknown]
  - Erythema [Recovered/Resolved]
  - Surgery [Unknown]
  - Weight decreased [Unknown]
  - Condition aggravated [Unknown]
  - Product dose omission issue [Unknown]
